FAERS Safety Report 10211273 (Version 4)
Quarter: 2014Q4

REPORT INFORMATION
  Report Type: Spontaneous
  Country: US (occurrence: US)
  Receive Date: 20140602
  Receipt Date: 20141215
  Transmission Date: 20150528
  Serious: Yes (Other)
  Sender: FDA-Public Use
  Company Number: US-GLAXOSMITHKLINE-A1074802A

PATIENT
  Age: 63 Year
  Sex: Male

DRUGS (16)
  1. VITAMIN B1 [Concomitant]
     Active Substance: THIAMINE HYDROCHLORIDE
  2. ADVAIR DISKUS [Concomitant]
     Active Substance: FLUTICASONE PROPIONATE\SALMETEROL XINAFOATE
  3. AMBIEN [Concomitant]
     Active Substance: ZOLPIDEM TARTRATE
  4. ADVAIR HFA [Suspect]
     Active Substance: FLUTICASONE PROPIONATE\SALMETEROL XINAFOATE
     Indication: ASTHMA
     Route: 055
     Dates: start: 2004
  5. FINASTERIDE. [Concomitant]
     Active Substance: FINASTERIDE
  6. REQUIP [Concomitant]
     Active Substance: ROPINIROLE HYDROCHLORIDE
  7. VENTOLIN [Suspect]
     Active Substance: ALBUTEROL SULFATE
     Indication: ASTHMA
     Route: 055
     Dates: start: 201404
  8. CPAP [Concomitant]
     Active Substance: DEVICE
  9. PREDNISONE. [Concomitant]
     Active Substance: PREDNISONE
  10. CENTRUM A-Z [Concomitant]
     Active Substance: VITAMINS
  11. KEPPRA [Concomitant]
     Active Substance: LEVETIRACETAM
  12. UNSPECIFIED MEDICATION [Concomitant]
     Active Substance: UNSPECIFIED INGREDIENT
  13. FOLIC ACID. [Concomitant]
     Active Substance: FOLIC ACID
  14. ASPIRIN. [Concomitant]
     Active Substance: ASPIRIN
  15. CEPHALEXIN. [Concomitant]
     Active Substance: CEPHALEXIN
  16. OXYGEN. [Concomitant]
     Active Substance: OXYGEN

REACTIONS (11)
  - Lung infection [Recovered/Resolved]
  - Sinus congestion [Recovered/Resolved]
  - Chronic obstructive pulmonary disease [Unknown]
  - Atelectasis [Unknown]
  - Sinusitis [Recovered/Resolved]
  - Drug ineffective [Unknown]
  - Emphysema [Unknown]
  - Product quality issue [Unknown]
  - Pulmonary congestion [Recovered/Resolved with Sequelae]
  - Cardiomegaly [Unknown]
  - Asthma [Recovered/Resolved]

NARRATIVE: CASE EVENT DATE: 201404
